FAERS Safety Report 8414996-4 (Version None)
Quarter: 2012Q2

REPORT INFORMATION
  Report Type: 
  Country: None (occurrence: None)
  Receive Date: 20120606
  Receipt Date: 20120326
  Transmission Date: 20120825
  Serious: No
  Sender: FDA-Public Use
  Company Number: US-GLAXOSMITHKLINE-A0971162A

PATIENT
  Age: 40 Year
  Sex: Female

DRUGS (3)
  1. LAMOTRIGINE [Suspect]
     Route: 048
  2. RITALIN [Concomitant]
  3. LAMICTAL [Suspect]
     Route: 048
     Dates: start: 20110901

REACTIONS (4)
  - LACRIMATION INCREASED [None]
  - NASAL DISCOMFORT [None]
  - PILOERECTION [None]
  - RASH [None]
